FAERS Safety Report 22600347 (Version 1)
Quarter: 2023Q2

REPORT INFORMATION
  Report Type: Spontaneous
  Country: US (occurrence: US)
  Receive Date: 20230614
  Receipt Date: 20230614
  Transmission Date: 20230721
  Serious: No
  Sender: FDA-Public Use
  Company Number: US-SA-SAC20230609000987

PATIENT
  Age: 24 Year
  Sex: Female

DRUGS (2)
  1. DUPIXENT [Suspect]
     Active Substance: DUPILUMAB
     Indication: Eczema
     Dosage: 300 MG,  FREQUENCY: OTHER
     Route: 058
     Dates: end: 2023
  2. DUPIXENT [Suspect]
     Active Substance: DUPILUMAB
     Indication: Asthma

REACTIONS (5)
  - Eczema eyelids [Unknown]
  - Eczema [Unknown]
  - Eyelid pain [Unknown]
  - Erythema of eyelid [Unknown]
  - Eyelid exfoliation [Unknown]

NARRATIVE: CASE EVENT DATE: 20230101
